FAERS Safety Report 7523828-8 (Version None)
Quarter: 2011Q2

REPORT INFORMATION
  Report Type: 
  Country: None (occurrence: None)
  Receive Date: 20110603
  Receipt Date: 20110523
  Transmission Date: 20111010
  Serious: Yes (Other)
  Sender: FDA-Public Use
  Company Number: IE-MYLANLABS-2011S1010819

PATIENT
  Age: 61 Year
  Sex: Female

DRUGS (3)
  1. WARFARIN SODIUM [Suspect]
     Indication: PULMONARY EMBOLISM
     Route: 065
     Dates: start: 20090401
  2. MIRTAZAPINE [Concomitant]
     Indication: DEPRESSION
     Route: 065
  3. VENLAFAXINE [Concomitant]
     Indication: DEPRESSION
     Route: 065

REACTIONS (1)
  - DERMATOMYOSITIS [None]
